FAERS Safety Report 7773979-8 (Version None)
Quarter: 2011Q3

REPORT INFORMATION
  Report Type: 
  Country: None (occurrence: None)
  Receive Date: 20110920
  Receipt Date: 20110908
  Transmission Date: 20111222
  Serious: Yes (Hospitalization)
  Sender: FDA-Public Use
  Company Number: B0747791A

PATIENT
  Age: 8 Year
  Sex: Female

DRUGS (2)
  1. MALOXINE (MALOXINE) [Suspect]
     Indication: MALARIA PROPHYLAXIS
  2. MALARONE [Suspect]
     Indication: MALARIA
     Dosage: 2 TABLETS

REACTIONS (13)
  - PRURITUS [None]
  - LIVER TRANSPLANT [None]
  - PYREXIA [None]
  - ASTHENIA [None]
  - PROTHROMBIN LEVEL DECREASED [None]
  - HEPATIC ENCEPHALOPATHY [None]
  - HEPATIC NECROSIS [None]
  - COAGULATION FACTOR V LEVEL DECREASED [None]
  - MALARIA [None]
  - JAUNDICE [None]
  - RASH ERYTHEMATOUS [None]
  - CHOLESTASIS [None]
  - ACUTE HEPATIC FAILURE [None]
